FAERS Safety Report 21068226 (Version 1)
Quarter: 2022Q3

REPORT INFORMATION
  Report Type: Other
  Country: None (occurrence: US)
  Receive Date: 20220712
  Receipt Date: 20220712
  Transmission Date: 20221027
  Serious: Yes (Hospitalization)
  Sender: FDA-Public Use
  Company Number: US-Ajanta Pharma USA Inc.-2130772

PATIENT
  Age: 75 Year
  Sex: Male

DRUGS (6)
  1. DULOXETINE [Suspect]
     Active Substance: DULOXETINE
     Indication: Depression
  2. METOPROLOL [Suspect]
     Active Substance: METOPROLOL
  3. LISINOPRIL [Concomitant]
     Active Substance: LISINOPRIL
  4. ALLOPURINOL [Concomitant]
     Active Substance: ALLOPURINOL
  5. SIMVASTATIN [Concomitant]
     Active Substance: SIMVASTATIN
  6. FUROSEMIDE [Concomitant]
     Active Substance: FUROSEMIDE

REACTIONS (3)
  - Drug interaction [Recovered/Resolved]
  - Lacunar stroke [Unknown]
  - Hypertensive emergency [Unknown]
